FAERS Safety Report 4810236-3 (Version None)
Quarter: 2005Q4

REPORT INFORMATION
  Report Type: 
  Country: None (occurrence: None)
  Receive Date: 20051026
  Receipt Date: 20050331
  Transmission Date: 20060501
  Serious: Yes (Other)
  Sender: FDA-Public Use
  Company Number: FR-GLAXOSMITHKLINE-B0378310A

PATIENT
  Age: 31 Year
  Sex: Female

DRUGS (3)
  1. COMBIVIR [Suspect]
     Indication: HIV INFECTION
     Dosage: 1TAB TWICE PER DAY
     Route: 048
     Dates: start: 20050225, end: 20050804
  2. VIRACEPT [Suspect]
     Indication: HIV INFECTION
     Dosage: 1250MG TWICE PER DAY
     Route: 048
     Dates: start: 20050225, end: 20050804
  3. TARDYFERON [Concomitant]
     Route: 048
     Dates: start: 20050101, end: 20050101

REACTIONS (3)
  - ANAEMIA [None]
  - NORMAL DELIVERY [None]
  - UTERINE LEIOMYOMA [None]
